FAERS Safety Report 9431926 (Version 1)
Quarter: 2013Q3

REPORT INFORMATION
  Report Type: Report from Study
  Country: CA (occurrence: CA)
  Receive Date: 20130731
  Receipt Date: 20130731
  Transmission Date: 20140515
  Serious: Yes (Death)
  Sender: FDA-Public Use
  Company Number: PHHY2013CA080056

PATIENT
  Age: 78 Year
  Sex: Female

DRUGS (9)
  1. ACLASTA [Suspect]
     Indication: OSTEOPOROSIS
     Dosage: 5 MG, UNK
     Route: 042
     Dates: start: 20080819
  2. ACLASTA [Suspect]
     Dosage: 5 MG, UNK
     Route: 042
     Dates: start: 20090918
  3. ACLASTA [Suspect]
     Dosage: 5 MG, UNK
     Route: 042
     Dates: start: 20120716
  4. MAVIK [Concomitant]
  5. HCT [Concomitant]
  6. BISOPROLOL [Concomitant]
  7. SPIRIVA [Concomitant]
  8. PAXIL//PAROXETINE HYDROCHLORIDE [Concomitant]
  9. SYMBICORT [Concomitant]

REACTIONS (1)
  - Cerebrovascular accident [Fatal]
